FAERS Safety Report 4886896-8 (Version None)
Quarter: 2006Q1

REPORT INFORMATION
  Report Type: 
  Country: None (occurrence: None)
  Receive Date: 20060119
  Receipt Date: 20060104
  Transmission Date: 20060701
  Serious: Yes (Other)
  Sender: FDA-Public Use
  Company Number: GXKR2006GB00454

PATIENT
  Age: 87 Year
  Sex: Female

DRUGS (4)
  1. ATENOLOL [Suspect]
     Dosage: 100 MG, QD, ORAL
     Route: 048
  2. MOXONIDINE (MOXONIDINE) [Suspect]
     Dosage: 600 UG, QD, ORAL
     Route: 048
  3. AMLODIPINE [Concomitant]
  4. FUROSEMIDE [Concomitant]

REACTIONS (4)
  - BRADYCARDIA [None]
  - FALL [None]
  - HYPOTENSION [None]
  - INCORRECT DOSE ADMINISTERED [None]
